FAERS Safety Report 14868715 (Version 1)
Quarter: 2018Q2

REPORT INFORMATION
  Report Type: Spontaneous
  Country: US (occurrence: US)
  Receive Date: 20180509
  Receipt Date: 20180509
  Transmission Date: 20180711
  Serious: No
  Sender: FDA-Public Use
  Company Number: US-PFIZER INC-2018189469

PATIENT
  Sex: Female

DRUGS (5)
  1. EFUDEX [Concomitant]
     Active Substance: FLUOROURACIL
     Dosage: UNK
  2. AFINITOR [Concomitant]
     Active Substance: EVEROLIMUS
     Dosage: UNK
  3. DOCETAXEL. [Suspect]
     Active Substance: DOCETAXEL
     Indication: BREAST CANCER
     Dosage: UNK (1 CYCLE)
     Dates: start: 20080207, end: 20080208
  4. NEOSAR [Concomitant]
     Active Substance: CYCLOPHOSPHAMIDE
     Dosage: UNK
  5. ZORTRESS [Concomitant]
     Active Substance: EVEROLIMUS

REACTIONS (1)
  - Alopecia [Not Recovered/Not Resolved]
